FAERS Safety Report 14731456 (Version 1)
Quarter: 2018Q2

REPORT INFORMATION
  Report Type: Spontaneous
  Country: FR (occurrence: FR)
  Receive Date: 20180407
  Receipt Date: 20180407
  Transmission Date: 20180711
  Serious: Yes (Life-Threatening)
  Sender: FDA-Public Use
  Company Number: FR-AUROBINDO-AUR-APL-2018-018465

PATIENT
  Age: 87 Year
  Sex: Male

DRUGS (6)
  1. GLIMEPIRIDE. [Suspect]
     Active Substance: GLIMEPIRIDE
     Indication: DRUG ADMINISTRATION ERROR
     Dosage: 8 MILLIGRAM, 1 TOTAL
     Route: 048
     Dates: start: 20180224, end: 20180224
  2. FLECAINE LP [Suspect]
     Active Substance: FLECAINIDE
     Indication: DRUG ADMINISTRATION ERROR
     Dosage: 150 MILLIGRAM,1 TOTAL
     Route: 048
     Dates: start: 20180224, end: 20180224
  3. CELIPROLOL [Suspect]
     Active Substance: CELIPROLOL
     Indication: DRUG ADMINISTRATION ERROR
     Dosage: 200 MILLIGRAM, 1 TOTAL
     Route: 048
     Dates: start: 20180224, end: 20180224
  4. RILMENIDINE [Suspect]
     Active Substance: RILMENIDINE
     Indication: DRUG ADMINISTRATION ERROR
     Dosage: 2 MILLIGRAM, 1 TOTAL
     Route: 048
     Dates: start: 20180224, end: 20180224
  5. JANUMET [Suspect]
     Active Substance: METFORMIN HYDROCHLORIDE\SITAGLIPTIN PHOSPHATE
     Indication: DRUG ADMINISTRATION ERROR
     Dosage: 1 DOSAGE FORM, 1 TOTAL
     Route: 048
     Dates: start: 20180224, end: 20180224
  6. TELMISARTAN+HYDROCHLOROTHIAZIDE [Suspect]
     Active Substance: HYDROCHLOROTHIAZIDE\TELMISARTAN
     Indication: DRUG ADMINISTRATION ERROR
     Dosage: 80 MILLIGRAM,1 TOTAL
     Route: 048
     Dates: start: 20180224, end: 20180224

REACTIONS (3)
  - Hypoglycaemic coma [Recovered/Resolved]
  - Bradycardia [Recovered/Resolved]
  - Atrioventricular block complete [Recovered/Resolved]

NARRATIVE: CASE EVENT DATE: 20180225
